FAERS Safety Report 13511730 (Version 1)
Quarter: 2017Q2

REPORT INFORMATION
  Report Type: Spontaneous
  Country: TW (occurrence: TW)
  Receive Date: 20170504
  Receipt Date: 20170504
  Transmission Date: 20170830
  Serious: Yes (Other)
  Sender: FDA-Public Use
  Company Number: TW-MYLANLABS-2017M1026608

PATIENT

DRUGS (1)
  1. KETAMINE [Suspect]
     Active Substance: KETAMINE
     Indication: PRODUCT USED FOR UNKNOWN INDICATION
     Route: 045

REACTIONS (5)
  - Drug use disorder [Recovering/Resolving]
  - Pollakiuria [Not Recovered/Not Resolved]
  - Nasal septum perforation [Recovering/Resolving]
  - Suprapubic pain [Not Recovered/Not Resolved]
  - Micturition urgency [Not Recovered/Not Resolved]
